FAERS Safety Report 22081678 (Version 1)
Quarter: 2023Q1

REPORT INFORMATION
  Report Type: Report from Study
  Country: US (occurrence: US)
  Receive Date: 20230310
  Receipt Date: 20230310
  Transmission Date: 20230417
  Serious: Yes (Death)
  Sender: FDA-Public Use
  Company Number: US-ABBVIE-4315542

PATIENT
  Age: 38 Year
  Sex: Male

DRUGS (1)
  1. IMBRUVICA [Suspect]
     Active Substance: IBRUTINIB
     Indication: Waldenstrom^s macroglobulinaemia
     Route: 048
     Dates: start: 20220815, end: 20230215

REACTIONS (4)
  - Neutropenia [Fatal]
  - White blood cell count decreased [Unknown]
  - Muscle spasms [Unknown]
  - Stomatitis [Unknown]

NARRATIVE: CASE EVENT DATE: 20230208
